FAERS Safety Report 5017926-0 (Version None)
Quarter: 2006Q2

REPORT INFORMATION
  Report Type: 
  Country: None (occurrence: None)
  Receive Date: 20060605
  Receipt Date: 20060518
  Transmission Date: 20061013
  Serious: Yes (Death)
  Sender: FDA-Public Use
  Company Number: SI-AVENTIS-200615417GDDC

PATIENT
  Age: 59 Year
  Sex: Female
  Weight: 89 kg

DRUGS (6)
  1. ARAVA [Suspect]
     Indication: RHEUMATOID ARTHRITIS
     Route: 048
     Dates: start: 20000928, end: 20030330
  2. MEDROL [Concomitant]
     Indication: RHEUMATOID ARTHRITIS
     Route: 048
  3. NAKLOFEN [Concomitant]
     Indication: RHEUMATOID ARTHRITIS
     Route: 048
  4. CORDIPIN [Concomitant]
     Indication: ESSENTIAL HYPERTENSION
     Route: 048
  5. ENAP [Concomitant]
     Indication: ESSENTIAL HYPERTENSION
     Dosage: DOSE: UNK
     Route: 048
  6. DIAPREL [Concomitant]
     Indication: DIABETES MELLITUS
     Dosage: DOSE: UNK
     Route: 048

REACTIONS (8)
  - DYSPNOEA [None]
  - NAUSEA [None]
  - PULMONARY EMBOLISM [None]
  - PURULENT PERICARDITIS [None]
  - PYREXIA [None]
  - SEPSIS [None]
  - SHOCK [None]
  - STAPHYLOCOCCAL INFECTION [None]
